FAERS Safety Report 9740022 (Version 2)
Quarter: 2014Q2

REPORT INFORMATION
  Report Type: Spontaneous
  Country: SI (occurrence: SI)
  Receive Date: 20131209
  Receipt Date: 20140501
  Transmission Date: 20141212
  Serious: Yes (Life-Threatening)
  Sender: FDA-Public Use
  Company Number: SI-TEVA-447437ISR

PATIENT
  Age: 54 Year
  Sex: Male

DRUGS (8)
  1. OXALIPLATIN TEVA 5 MG/ML [Suspect]
     Indication: COLORECTAL CANCER METASTATIC
     Route: 042
     Dates: start: 20131108, end: 20140410
  2. AVASTIN 25 MG/ML CONCENTRATE FOR SOLUTION FOR INFUSION [Suspect]
     Indication: COLORECTAL CANCER METASTATIC
     Route: 042
     Dates: start: 20131108, end: 20140410
  3. DEXAMETHASONE [Concomitant]
     Indication: PREMEDICATION
  4. APAURIN [Concomitant]
     Indication: PREMEDICATION
  5. KYTRIL [Concomitant]
     Indication: PREMEDICATION
  6. NOLPAZA [Concomitant]
  7. AMLOPIN [Concomitant]
  8. LEXAURIN [Concomitant]

REACTIONS (2)
  - Hepatorenal syndrome [Recovering/Resolving]
  - Multi-organ failure [Recovering/Resolving]
